FAERS Safety Report 11830322 (Version 3)
Quarter: 2015Q4

REPORT INFORMATION
  Report Type: Spontaneous
  Country: US (occurrence: US)
  Receive Date: 20151214
  Receipt Date: 20151214
  Transmission Date: 20160305
  Serious: Yes (Disabling, Other)
  Sender: FDA-Public Use
  Company Number: US-JNJFOC-20151112857

PATIENT
  Age: 60 Year
  Sex: Female

DRUGS (1)
  1. LEVAQUIN [Suspect]
     Active Substance: LEVOFLOXACIN
     Indication: INFECTION
     Dosage: TOOK 9 PILLS
     Route: 065
     Dates: start: 201403

REACTIONS (4)
  - Pain [Unknown]
  - Fatigue [Unknown]
  - Tendon injury [Unknown]
  - Blindness [Unknown]
